FAERS Safety Report 16261594 (Version 1)
Quarter: 2019Q2

REPORT INFORMATION
  Report Type: Spontaneous
  Country: CN (occurrence: CN)
  Receive Date: 20190501
  Receipt Date: 20190501
  Transmission Date: 20190711
  Serious: Yes (Other)
  Sender: FDA-Public Use
  Company Number: CN-PFIZER INC-2019177644

PATIENT
  Age: 81 Year
  Sex: Male

DRUGS (5)
  1. LYRICA [Suspect]
     Active Substance: PREGABALIN
     Indication: POST HERPETIC NEURALGIA
     Dosage: 75 MG, 1X/DAY
     Route: 048
     Dates: start: 20190323
  2. LYRICA [Suspect]
     Active Substance: PREGABALIN
     Dosage: 225 MG, DAILY
     Route: 048
     Dates: start: 20190324
  3. NORVASC [Concomitant]
     Active Substance: AMLODIPINE BESYLATE
     Dosage: 1 DF, DAILY
     Route: 048
  4. IRBESARTAN. [Concomitant]
     Active Substance: IRBESARTAN
     Dosage: 2 DF, DAILY
     Route: 048
  5. IMDUR [Concomitant]
     Active Substance: ISOSORBIDE MONONITRATE
     Dosage: 1 DF, DAILY
     Route: 048

REACTIONS (7)
  - Dysstasia [Not Recovered/Not Resolved]
  - Dysarthria [Recovering/Resolving]
  - Somnolence [Recovering/Resolving]
  - Dizziness [Recovering/Resolving]
  - Balance disorder [Recovering/Resolving]
  - Muscular weakness [Not Recovered/Not Resolved]
  - Drug ineffective [Unknown]

NARRATIVE: CASE EVENT DATE: 20190323
